FAERS Safety Report 6570150-2 (Version None)
Quarter: 2010Q1

REPORT INFORMATION
  Report Type: 
  Country: None (occurrence: None)
  Receive Date: 20100202
  Receipt Date: 20100202
  Transmission Date: 20100710
  Serious: Yes (Other)
  Sender: FDA-Public Use
  Company Number: None

PATIENT
  Age: 61 Year
  Sex: Male
  Weight: 73.4827 kg

DRUGS (2)
  1. ZEGERID [Suspect]
     Indication: GASTROOESOPHAGEAL REFLUX DISEASE
     Dosage: I PACKET IN WATER, PER LABEL HS PO
     Route: 048
     Dates: start: 20100105, end: 20100108
  2. PEPCID COMPLETE [Suspect]
     Indication: GASTROOESOPHAGEAL REFLUX DISEASE
     Dosage: 2 TABS HS PO
     Route: 048
     Dates: start: 20100111, end: 20100115

REACTIONS (3)
  - GASTRITIS [None]
  - GASTROINTESTINAL DISORDER [None]
  - WEIGHT DECREASED [None]
